FAERS Safety Report 4317281-5 (Version None)
Quarter: 2004Q1

REPORT INFORMATION
  Report Type: 
  Country: None (occurrence: None)
  Receive Date: 20040312
  Receipt Date: 20040301
  Transmission Date: 20041129
  Serious: Yes (Hospitalization)
  Sender: FDA-Public Use
  Company Number: AT-JNJFOC-20040300547

PATIENT
  Age: 92 Year
  Sex: Male
  Weight: 63 kg

DRUGS (1)
  1. RISPERDAL [Suspect]
     Indication: DRUG USE FOR UNKNOWN INDICATION
     Dosage: 1 MG, IN 1 DAY, ORAL
     Route: 048
     Dates: start: 20030719, end: 20030720

REACTIONS (2)
  - ATRIAL FIBRILLATION [None]
  - LEFT VENTRICULAR FAILURE [None]
